FAERS Safety Report 17004760 (Version 1)
Quarter: 2019Q4

REPORT INFORMATION
  Report Type: Spontaneous
  Country: FR (occurrence: FR)
  Receive Date: 20191107
  Receipt Date: 20191107
  Transmission Date: 20200122
  Serious: Yes (Other)
  Sender: FDA-Public Use
  Company Number: FR-PFIZER INC-2019477669

PATIENT
  Age: 1 Year
  Sex: Female

DRUGS (1)
  1. ALDACTONE [Suspect]
     Active Substance: SPIRONOLACTONE
     Indication: NEPHROCALCINOSIS
     Dosage: 1 DF, 1X/DAY
     Route: 048
     Dates: start: 20180906, end: 201909

REACTIONS (2)
  - Skin exfoliation [Recovered/Resolved]
  - Erythrosis [Recovered/Resolved]

NARRATIVE: CASE EVENT DATE: 201906
